FAERS Safety Report 18908659 (Version 3)
Quarter: 2021Q1

REPORT INFORMATION
  Report Type: Spontaneous
  Country: NL (occurrence: NL)
  Receive Date: 20210218
  Receipt Date: 20210302
  Transmission Date: 20210420
  Serious: Yes (Death, Other)
  Sender: FDA-Public Use
  Company Number: NL-JNJFOC-20210229642

PATIENT
  Age: 67 Year
  Sex: Female
  Weight: 76 kg

DRUGS (10)
  1. COVID?19 VACCINE NOS. [Suspect]
     Active Substance: COVID-19 VACCINE NOS
     Indication: COVID-19 IMMUNISATION
     Route: 065
     Dates: start: 20210126
  2. FENTANYL. [Concomitant]
     Active Substance: FENTANYL
  3. VITAMINE B COMPLEX [Concomitant]
     Active Substance: CYANOCOBALAMIN\PYRIDOXINE HYDROCHLORIDE\RIBOFLAVIN\SODIUM PANTOTHENATE\THIAMINE HYDROCHLORIDE\VITAMIN B COMPLEX
  4. AMLODIPINE/VALSARTAN [Concomitant]
     Active Substance: AMLODIPINE\VALSARTAN
  5. PARACETAMOL [Concomitant]
     Active Substance: ACETAMINOPHEN
  6. COLECALCIFEROL [Concomitant]
     Active Substance: CHOLECALCIFEROL
     Dosage: 2800 IE
  7. CLOZAPINE. [Concomitant]
     Active Substance: CLOZAPINE
  8. DUROGESIC [Suspect]
     Active Substance: FENTANYL
     Indication: PAIN
     Dosage: 1X EVERY 3 DAYS; IT HAS BEEN INCREASED FROM 12 TO 25
     Route: 065
  9. METFORMINE [METFORMIN] [Concomitant]
     Active Substance: METFORMIN HYDROCHLORIDE
  10. FERROFUMARAAT [Concomitant]
     Active Substance: FERROUS FUMARATE

REACTIONS (5)
  - Peripheral coldness [Unknown]
  - Death [Fatal]
  - Heart rate decreased [Unknown]
  - Syncope [Unknown]
  - Malaise [Unknown]

NARRATIVE: CASE EVENT DATE: 20210128
